FAERS Safety Report 9325828 (Version 2)
Quarter: 2013Q2

REPORT INFORMATION
  Report Type: Spontaneous
  Country: US (occurrence: US)
  Receive Date: 20130604
  Receipt Date: 20130628
  Transmission Date: 20140414
  Serious: Yes (Death)
  Sender: FDA-Public Use
  Company Number: US-ASTELLAS-2013US005758

PATIENT
  Age: 71 Year
  Sex: Male

DRUGS (4)
  1. TARCEVA [Suspect]
     Indication: PRODUCT USED FOR UNKNOWN INDICATION
     Dosage: UNK
     Route: 048
  2. AVASTIN /01555201/ [Suspect]
     Indication: RENAL CANCER
     Dosage: UNK
     Route: 065
  3. AVASTIN /01555201/ [Suspect]
     Indication: MALIGNANT URINARY TRACT NEOPLASM
  4. AVASTIN /01555201/ [Suspect]
     Indication: BONE CANCER

REACTIONS (1)
  - Death [Fatal]
